FAERS Safety Report 4611881-0 (Version None)
Quarter: 2005Q2

REPORT INFORMATION
  Report Type: 
  Country: None (occurrence: None)
  Receive Date: 20050308
  Receipt Date: 20050121
  Transmission Date: 20051028
  Serious: Yes (Other)
  Sender: FDA-Public Use
  Company Number: 2005UW01108

PATIENT
  Age: 76 Year
  Sex: Female
  Weight: 71.214 kg

DRUGS (17)
  1. LISINOPRIL [Suspect]
     Dates: start: 20041201, end: 20050101
  2. CRESTOR [Suspect]
     Indication: BLOOD CHOLESTEROL INCREASED
     Dosage: 10 MG PO
     Route: 048
     Dates: start: 20041201
  3. LIPITOR [Concomitant]
  4. MIRAPEX [Concomitant]
  5. PLAVIX [Concomitant]
  6. LEVOXYL [Concomitant]
  7. ULTRACET [Concomitant]
  8. EFFEXOR [Concomitant]
  9. OXYTROL [Concomitant]
  10. LORAZEPAM [Concomitant]
  11. NITROSTAT [Concomitant]
  12. MULTI-VITAMINS [Concomitant]
  13. ASPIRIN [Concomitant]
  14. VITAMIN B-12 [Concomitant]
  15. VIT C TAB [Concomitant]
  16. VITAMIN E [Concomitant]
  17. MICARDIS [Concomitant]

REACTIONS (3)
  - COUGH [None]
  - DRY THROAT [None]
  - STRESS INCONTINENCE [None]
